FAERS Safety Report 4647213-1 (Version None)
Quarter: 2005Q2

REPORT INFORMATION
  Report Type: 
  Country: None (occurrence: None)
  Receive Date: 20050426
  Receipt Date: 20050414
  Transmission Date: 20051028
  Serious: Yes (Other)
  Sender: FDA-Public Use
  Company Number: 2005054672

PATIENT
  Age: 47 Year
  Sex: Female
  Weight: 54 kg

DRUGS (3)
  1. NEURONTIN [Suspect]
     Indication: EPILEPSY
     Dosage: 1200 MG (3 IN 1 D), ORAL
     Route: 048
     Dates: start: 20041005, end: 20041115
  2. CARBAMAZEPINE [Concomitant]
  3. TOPIRAMATE [Concomitant]

REACTIONS (4)
  - COMPLEX PARTIAL SEIZURES [None]
  - GRAND MAL CONVULSION [None]
  - HEAD INJURY [None]
  - MALAISE [None]
